FAERS Safety Report 15940239 (Version 1)
Quarter: 2019Q1

REPORT INFORMATION
  Report Type: Spontaneous
  Country: JP (occurrence: JP)
  Receive Date: 20190208
  Receipt Date: 20190208
  Transmission Date: 20190417
  Serious: Yes (Hospitalization, Other)
  Sender: FDA-Public Use
  Company Number: JP-JNJFOC-20190209432

PATIENT
  Age: 77 Year
  Sex: Male

DRUGS (4)
  1. MERISLON [Concomitant]
     Active Substance: BETAHISTINE MESILATE
     Route: 065
  2. ADALAT [Concomitant]
     Active Substance: NIFEDIPINE
     Route: 065
  3. XARELTO [Suspect]
     Active Substance: RIVAROXABAN
     Indication: PRODUCT USED FOR UNKNOWN INDICATION
     Route: 048
  4. LEXOTAN [Concomitant]
     Active Substance: BROMAZEPAM
     Route: 065

REACTIONS (2)
  - Pulmonary embolism [Unknown]
  - Cerebral haemorrhage [Not Recovered/Not Resolved]

NARRATIVE: CASE EVENT DATE: 20190129
